FAERS Safety Report 25831448 (Version 1)
Quarter: 2025Q3

REPORT INFORMATION
  Report Type: Spontaneous
  Country: US (occurrence: None)
  Receive Date: 20250918
  Receipt Date: 20250918
  Transmission Date: 20251020
  Serious: Yes (Hospitalization)
  Sender: FDA-CTU
  Company Number: None

PATIENT
  Sex: Female

DRUGS (1)
  1. STELARA [Suspect]
     Active Substance: USTEKINUMAB
     Indication: Crohn^s disease
     Dosage: OTHER STRENGTH : 90MG/1ML ;?OTHER FREQUENCY : EVERY 4 WEEKS;?
     Route: 058
     Dates: start: 20221109

REACTIONS (1)
  - Obstruction [None]
